FAERS Safety Report 7318585-4 (Version None)
Quarter: 2011Q1

REPORT INFORMATION
  Report Type: 
  Country: None (occurrence: None)
  Receive Date: 20110228
  Receipt Date: 20110223
  Transmission Date: 20110831
  Serious: Yes (Hospitalization, Other)
  Sender: FDA-Public Use
  Company Number: US-ASTRAZENECA-2007UW02146

PATIENT
  Age: 14628 Day
  Sex: Female
  Weight: 97.5 kg

DRUGS (18)
  1. WELLBUTRIN XL [Concomitant]
     Dates: start: 20060913
  2. SYNTHROID [Concomitant]
     Dates: start: 20060623
  3. SEROQUEL [Suspect]
     Dosage: 50 MG BID 2 TAB
     Route: 048
     Dates: start: 20060214
  4. PREMARIN [Concomitant]
     Route: 048
     Dates: start: 20060203
  5. PRILOSEC [Concomitant]
     Dates: start: 20060623
  6. NORVASC [Concomitant]
     Indication: BLOOD PRESSURE
     Dates: start: 20060214
  7. CARAFATE [Concomitant]
     Route: 048
     Dates: start: 20060203
  8. PROCARDIA [Concomitant]
     Dates: start: 20060601
  9. FOLIC ACID [Concomitant]
     Dates: start: 20060601
  10. SEROQUEL [Suspect]
     Dosage: 25 MG-300 MG
     Route: 048
     Dates: start: 20060215
  11. THIAMINE [Concomitant]
     Route: 048
     Dates: start: 20060203
  12. SEROQUEL [Suspect]
     Indication: BIPOLAR DISORDER
     Route: 048
     Dates: start: 20060201, end: 20061101
  13. ELAVIL [Concomitant]
     Dosage: 10 MG 1 TO 2 TABS PO HS
     Route: 048
     Dates: start: 20060203
  14. MULTIVITAMINE [Concomitant]
     Dosage: DAILY
     Route: 048
     Dates: start: 20060203
  15. SYNTHROID [Concomitant]
     Route: 048
     Dates: start: 20060203
  16. PROZAC [Concomitant]
     Dates: start: 20060601
  17. DEPAKOTE [Concomitant]
     Dates: start: 20060901
  18. TRAZODONE [Concomitant]
     Dates: start: 20060727

REACTIONS (18)
  - PANCREATITIS ACUTE [None]
  - LIVER FUNCTION TEST ABNORMAL [None]
  - HYPOTHYROIDISM [None]
  - AURICULAR SWELLING [None]
  - CHILLS [None]
  - HEPATITIS ALCOHOLIC [None]
  - ALCOHOLIC PANCREATITIS [None]
  - SALIVARY GLAND CYST [None]
  - GLUCOSE TOLERANCE IMPAIRED [None]
  - HEPATITIS C [None]
  - URTICARIA [None]
  - RASH [None]
  - ARTHRALGIA [None]
  - CHRONIC HEPATITIS [None]
  - BRONCHIAL IRRITATION [None]
  - MYALGIA [None]
  - TYPE 2 DIABETES MELLITUS [None]
  - MUSCULAR WEAKNESS [None]
